FAERS Safety Report 25587342 (Version 1)
Quarter: 2025Q3

REPORT INFORMATION
  Report Type: Spontaneous
  Country: JP (occurrence: JP)
  Receive Date: 20250721
  Receipt Date: 20250721
  Transmission Date: 20251021
  Serious: Yes (Hospitalization, Other)
  Sender: PFIZER
  Company Number: JP-PFIZER INC-PV202500086662

PATIENT
  Age: 7 Decade
  Sex: Female

DRUGS (1)
  1. METHOTREXATE SODIUM [Suspect]
     Active Substance: METHOTREXATE SODIUM
     Route: 048

REACTIONS (7)
  - Toxicity to various agents [Unknown]
  - Pancytopenia [Unknown]
  - Rash [Unknown]
  - Drug eruption [Unknown]
  - Skin erosion [Unknown]
  - Mouth ulceration [Unknown]
  - C-reactive protein increased [Unknown]
